FAERS Safety Report 8956165 (Version 1)
Quarter: 2012Q4

REPORT INFORMATION
  Report Type: 
  Country: US (occurrence: US)
  Receive Date: 20121210
  Receipt Date: 20121210
  Transmission Date: 20130627
  Serious: Yes (Hospitalization, Other)
  Sender: FDA-Public Use
  Company Number: US-BAYER-2012-127042

PATIENT
  Age: 37 Year
  Sex: Female
  Weight: 132 kg

DRUGS (6)
  1. YAZ [Suspect]
     Dosage: UNK
     Dates: start: 201010
  2. YASMIN [Suspect]
     Dosage: UNK
     Dates: start: 201010
  3. OCELLA [Suspect]
     Dosage: UNK
     Dates: start: 201010
  4. NAPROXEN [Concomitant]
  5. PRILOSEC [Concomitant]
  6. FERROUS SULFATE [Concomitant]

REACTIONS (8)
  - Pulmonary embolism [None]
  - Thrombosis [None]
  - Thrombophlebitis superficial [None]
  - Injury [None]
  - Pain [None]
  - Emotional distress [None]
  - Anxiety [None]
  - Psychological trauma [None]
